FAERS Safety Report 25518314 (Version 1)
Quarter: 2025Q3

REPORT INFORMATION
  Report Type: Spontaneous
  Country: CN (occurrence: CN)
  Receive Date: 20250704
  Receipt Date: 20250704
  Transmission Date: 20251021
  Serious: Yes (Hospitalization)
  Sender: SANOFI AVENTIS
  Company Number: CN-SA-2025SA188245

PATIENT
  Age: 71 Year
  Sex: Male
  Weight: 75 kg

DRUGS (6)
  1. OXALIPLATIN [Suspect]
     Active Substance: OXALIPLATIN
     Indication: Chemotherapy
     Dosage: 180 MG, QD
     Route: 041
     Dates: start: 20250312, end: 20250312
  2. OXALIPLATIN [Suspect]
     Active Substance: OXALIPLATIN
     Dosage: 180 MG, QD
     Route: 041
     Dates: start: 20250327, end: 20250327
  3. OXALIPLATIN [Suspect]
     Active Substance: OXALIPLATIN
     Dosage: 180 MG, QD
     Route: 041
     Dates: start: 20250417, end: 20250417
  4. OXALIPLATIN [Suspect]
     Active Substance: OXALIPLATIN
     Dosage: 180 MG, QD
     Route: 041
     Dates: start: 20250508, end: 20250508
  5. OXALIPLATIN [Suspect]
     Active Substance: OXALIPLATIN
     Dosage: 180 MG, QD
     Route: 041
     Dates: start: 20250530, end: 20250530
  6. PEMETREXED DISODIUM [Concomitant]
     Active Substance: PEMETREXED DISODIUM
     Indication: Chemotherapy
     Dosage: 800 MG, QD
     Route: 041
     Dates: start: 20250312, end: 20250622

REACTIONS (2)
  - Phlebitis [Not Recovered/Not Resolved]
  - Paraesthesia [Unknown]

NARRATIVE: CASE EVENT DATE: 20250601
